FAERS Safety Report 4431044-1 (Version None)
Quarter: 2004Q3

REPORT INFORMATION
  Report Type: 
  Country: None (occurrence: None)
  Receive Date: 20040824
  Receipt Date: 20031030
  Transmission Date: 20050211
  Serious: No
  Sender: FDA-Public Use
  Company Number: US-BRISTOL-MYERS SQUIBB COMPANY-12422804

PATIENT
  Age: 83 Year
  Sex: Female
  Weight: 66 kg

DRUGS (9)
  1. LAC-HYDRIN [Suspect]
     Indication: PRURITUS
     Route: 061
  2. LAC-HYDRIN [Suspect]
     Indication: RASH
     Route: 061
  3. ENALAPRIL MALEATE [Concomitant]
  4. PREVACID [Concomitant]
  5. ZOCOR [Concomitant]
     Dosage: HS
  6. PLAVIX [Concomitant]
  7. DIGOXIN [Concomitant]
  8. FOLIC ACID [Concomitant]
  9. DETROL [Concomitant]

REACTIONS (2)
  - APPLICATION SITE BURNING [None]
  - DRUG INEFFECTIVE [None]
